FAERS Safety Report 8884313 (Version 1)
Quarter: 2012Q4

REPORT INFORMATION
  Report Type: 
  Country: US (occurrence: US)
  Receive Date: 20121102
  Receipt Date: 20121102
  Transmission Date: 20130627
  Serious: No
  Sender: FDA-Public Use
  Company Number: PHEH2012US021037

PATIENT
  Age: 24 Year
  Sex: Female

DRUGS (1)
  1. GILENYA [Suspect]
     Indication: RELAPSING-REMITTING MULTIPLE SCLEROSIS
     Dosage: 0.5 mg, QD
     Route: 048
     Dates: start: 20121025

REACTIONS (6)
  - ECG signs of ventricular hypertrophy [Unknown]
  - Electrocardiogram abnormal [Unknown]
  - Blood pressure decreased [Recovered/Resolved]
  - Atrioventricular block first degree [Unknown]
  - Electrocardiogram PR prolongation [Unknown]
  - Heart rate decreased [Recovered/Resolved]
